FAERS Safety Report 8845669 (Version 2)
Quarter: 2015Q3

REPORT INFORMATION
  Report Type: Report from Study
  Country: US (occurrence: US)
  Receive Date: 20121017
  Receipt Date: 20150814
  Transmission Date: 20151125
  Serious: Yes (Other)
  Sender: FDA-Public Use
  Company Number: US-ROCHE-1141999

PATIENT
  Sex: Female
  Weight: 85.6 kg

DRUGS (2)
  1. NUTROPIN [Suspect]
     Active Substance: SOMATROPIN
     Indication: TURNER^S SYNDROME
     Route: 058
     Dates: start: 199704
  2. NUTROPIN [Suspect]
     Active Substance: SOMATROPIN
     Indication: GONADAL DYSGENESIS

REACTIONS (9)
  - Influenza [Unknown]
  - Loss of consciousness [Unknown]
  - Pain in extremity [Unknown]
  - Headache [Unknown]
  - Neoplasm [Unknown]
  - Oedema [Unknown]
  - Paraesthesia [Unknown]
  - Vomiting [Unknown]
  - Gastric disorder [Unknown]
